FAERS Safety Report 21683168 (Version 1)
Quarter: 2022Q4

REPORT INFORMATION
  Report Type: Report from Study
  Country: DE (occurrence: DE)
  Receive Date: 20221205
  Receipt Date: 20221205
  Transmission Date: 20230112
  Serious: Yes (Hospitalization)
  Sender: FDA-Public Use
  Company Number: DE-MYLANLABS-2022M1134766

PATIENT
  Sex: Female

DRUGS (3)
  1. METHOTREXATE [Suspect]
     Active Substance: METHOTREXATE
     Indication: Axial spondyloarthritis
     Dosage: 15 MILLIGRAM
     Route: 065
     Dates: start: 20170715, end: 20201103
  2. CELECOXIB [Suspect]
     Active Substance: CELECOXIB
     Indication: Axial spondyloarthritis
     Dosage: 200 MILLIGRAM
     Route: 065
     Dates: start: 20170724, end: 20180123
  3. NAPROXEN [Suspect]
     Active Substance: NAPROXEN
     Indication: Axial spondyloarthritis
     Dosage: 500 MILLIGRAM
     Route: 065
     Dates: start: 20180123

REACTIONS (1)
  - Somatic symptom disorder [Unknown]

NARRATIVE: CASE EVENT DATE: 20210101
